FAERS Safety Report 17469686 (Version 5)
Quarter: 2020Q1

REPORT INFORMATION
  Report Type: Report from Study
  Country: US (occurrence: US)
  Receive Date: 20200227
  Receipt Date: 20200325
  Transmission Date: 20200409
  Serious: Yes (Death, Hospitalization)
  Sender: FDA-Public Use
  Company Number: US-ACTELION-A-NJ2020-200231

PATIENT
  Age: 71 Year
  Sex: Female
  Weight: 59.86 kg

DRUGS (6)
  1. VELETRI [Suspect]
     Active Substance: EPOPROSTENOL
     Indication: PULMONARY HYPERTENSION
     Dosage: 13 NG/KG, PER MIN
     Route: 042
  2. ELIQUIS [Concomitant]
     Active Substance: APIXABAN
  3. XARELTO [Suspect]
     Active Substance: RIVAROXABAN
     Indication: PRODUCT USED FOR UNKNOWN INDICATION
     Dosage: UNK
     Route: 048
     Dates: start: 20200107
  4. DILTIAZEM. [Concomitant]
     Active Substance: DILTIAZEM
  5. AMBRISENTAN [Concomitant]
     Active Substance: AMBRISENTAN
  6. TADALAFIL. [Concomitant]
     Active Substance: TADALAFIL

REACTIONS (20)
  - Death [Fatal]
  - Haemoglobin decreased [Unknown]
  - Myocardial infarction [Unknown]
  - Headache [Unknown]
  - Nausea [Unknown]
  - Gait disturbance [Not Recovered/Not Resolved]
  - Asthenia [Recovering/Resolving]
  - Cerebrovascular accident [Unknown]
  - Confusional state [Unknown]
  - Dysarthria [Not Recovered/Not Resolved]
  - Diarrhoea [Unknown]
  - Melaena [Unknown]
  - Condition aggravated [Unknown]
  - Oedema peripheral [Recovering/Resolving]
  - Abdominal distension [Unknown]
  - Scleroderma [Unknown]
  - Swelling [Not Recovered/Not Resolved]
  - Fluid retention [Recovering/Resolving]
  - Rales [Unknown]
  - Decreased appetite [Unknown]

NARRATIVE: CASE EVENT DATE: 202001
